FAERS Safety Report 14510076 (Version 2)
Quarter: 2018Q1

REPORT INFORMATION
  Report Type: Spontaneous
  Country: ES (occurrence: ES)
  Receive Date: 20180209
  Receipt Date: 20180306
  Transmission Date: 20180509
  Serious: Yes (Death, Other)
  Sender: FDA-Public Use
  Company Number: ES-ASTELLAS-2018US007056

PATIENT
  Age: 61 Year
  Sex: Male

DRUGS (2)
  1. ENZALUTAMIDE [Suspect]
     Active Substance: ENZALUTAMIDE
     Indication: HORMONE-REFRACTORY PROSTATE CANCER
     Route: 065
     Dates: start: 201602, end: 201701
  2. ELIGARD [Suspect]
     Active Substance: LEUPROLIDE ACETATE
     Indication: ANTIANDROGEN THERAPY
     Dosage: UNK UNK, BIANNUAL
     Route: 065
     Dates: start: 201502, end: 201707

REACTIONS (10)
  - Anaemia [Unknown]
  - Pulmonary embolism [Fatal]
  - Hepatic steatosis [Unknown]
  - Haemangioma [Unknown]
  - Thrombocytopenia [Unknown]
  - Back pain [Unknown]
  - Malignant neoplasm progression [Unknown]
  - Gait disturbance [Recovered/Resolved]
  - General physical health deterioration [Unknown]
  - Prostatic specific antigen increased [Unknown]

NARRATIVE: CASE EVENT DATE: 201511
